FAERS Safety Report 20920783 (Version 2)
Quarter: 2022Q2

REPORT INFORMATION
  Report Type: Spontaneous
  Country: JP (occurrence: JP)
  Receive Date: 20220606
  Receipt Date: 20220622
  Transmission Date: 20220720
  Serious: Yes (Death, Hospitalization, Other)
  Sender: FDA-Public Use
  Company Number: JP-DSJP-DSJ-2022-119393

PATIENT
  Age: 48 Year
  Sex: Female

DRUGS (9)
  1. ENHERTU [Suspect]
     Active Substance: FAM-TRASTUZUMAB DERUXTECAN-NXKI
     Indication: HER2 positive breast cancer
     Dosage: 5.4 MG/KG, ONCE EVERY 3 WK
     Route: 041
     Dates: start: 20200722, end: 20210401
  2. HYDROMORPHONE HYDROCHLORIDE [Concomitant]
     Active Substance: HYDROMORPHONE HYDROCHLORIDE
     Indication: Analgesic therapy
     Dosage: 4 MG, QD
     Route: 048
  3. OLANZAPINE [Concomitant]
     Active Substance: OLANZAPINE
     Dosage: 5 MG, QD
     Route: 048
  4. SYMPROIC [Concomitant]
     Active Substance: NALDEMEDINE
     Dosage: 0.2 MG, QD
     Route: 048
  5. LEVOTHYROXINE SODIUM [Concomitant]
     Active Substance: LEVOTHYROXINE SODIUM
     Dosage: 75 UG, QD
     Route: 048
  6. MAGNESIUM OXIDE [Concomitant]
     Active Substance: MAGNESIUM OXIDE
     Dosage: 330 MG, TID
     Route: 048
  7. PROCHLORPERAZINE MALEATE [Concomitant]
     Active Substance: PROCHLORPERAZINE MALEATE
     Dosage: 5 MG, TID
     Route: 048
  8. APREPITANT [Concomitant]
     Active Substance: APREPITANT
     Dosage: 125 MG, AS NEEDED
     Route: 048
  9. APREPITANT [Concomitant]
     Active Substance: APREPITANT
     Dosage: 80 MG, AS NEEDED
     Route: 048

REACTIONS (12)
  - Hepatic function abnormal [Fatal]
  - Ascites [Unknown]
  - Constipation [Unknown]
  - Malaise [Unknown]
  - Nausea [Unknown]
  - Decreased appetite [Unknown]
  - Stomatitis [Unknown]
  - Dyspepsia [Unknown]
  - Vomiting [Unknown]
  - Nausea [Unknown]
  - Visual acuity reduced [Unknown]
  - Disease progression [Unknown]

NARRATIVE: CASE EVENT DATE: 20210101
